FAERS Safety Report 6557453-2 (Version None)
Quarter: 2010Q1

REPORT INFORMATION
  Report Type: 
  Country: None (occurrence: None)
  Receive Date: 20100129
  Receipt Date: 20100115
  Transmission Date: 20100710
  Serious: Yes (Hospitalization, Other)
  Sender: FDA-Public Use
  Company Number: US-ELI_LILLY_AND_COMPANY-US201001003673

PATIENT
  Sex: Female

DRUGS (17)
  1. FORTEO [Suspect]
     Indication: OSTEOPOROSIS
     Dosage: 20 UG, DAILY (1/D)
     Dates: start: 20090901
  2. ANALGESICS [Concomitant]
     Indication: PAIN
  3. CALTRATE +D [Concomitant]
  4. KLONOPIN [Concomitant]
     Dosage: 1 MG, UNK
  5. EFFEXOR [Concomitant]
     Dosage: 150 MG, UNK
  6. LANTUS [Concomitant]
  7. NOVOLOG [Concomitant]
     Dosage: 100 IU, UNK
     Route: 058
  8. INDAPAMID [Concomitant]
     Dosage: 5 MG, UNK
  9. TRAZODONE [Concomitant]
     Dosage: 150 MG, UNK
  10. MACRODANTIN [Concomitant]
     Dosage: UNK, DAILY (1/D)
  11. GEODON [Concomitant]
     Dosage: 60 MG, UNK
  12. COUMADIN [Concomitant]
     Dosage: 7.5 MG, 2 X/WEEK
  13. COUMADIN [Concomitant]
     Dosage: 5 MG, 5 X/WEEK
  14. NEURONTIN [Concomitant]
     Dosage: 300 MG, 2/D
  15. LORTAB [Concomitant]
  16. PERCOCET [Concomitant]
     Indication: PAIN
     Dosage: 4 X/ DAY
  17. PRILOSEC [Concomitant]
     Indication: GASTRIC DISORDER

REACTIONS (7)
  - BLOOD GLUCOSE INCREASED [None]
  - BONE DISORDER [None]
  - CONFUSIONAL STATE [None]
  - DIARRHOEA [None]
  - DYSURIA [None]
  - RASH ERYTHEMATOUS [None]
  - WHITE BLOOD CELL COUNT INCREASED [None]
